FAERS Safety Report 25522432 (Version 1)
Quarter: 2025Q3

REPORT INFORMATION
  Report Type: Spontaneous
  Country: EU (occurrence: EU)
  Receive Date: 20250707
  Receipt Date: 20250707
  Transmission Date: 20251021
  Serious: No
  Sender: ALKEM
  Company Number: EU-ALKEM LABORATORIES LIMITED-FR-ALKEM-2025-03908

PATIENT
  Age: 33 Year
  Sex: Female

DRUGS (4)
  1. DRONABINOL [Suspect]
     Active Substance: DRONABINOL
     Indication: Central pain syndrome
     Dosage: 2.5 MILLIGRAM, BID (TWICE DAILY) (MARINOL 2.5 MG, SOFT CAPSULE MOLLE)
     Route: 048
     Dates: start: 20250227, end: 20250323
  2. BACLOFEN [Concomitant]
     Active Substance: BACLOFEN
     Indication: Muscle spasms
     Route: 065
  3. PAROXETINE [Concomitant]
     Active Substance: PAROXETINE
     Indication: Adjustment disorder with depressed mood
     Route: 065
  4. PAROXETINE [Concomitant]
     Active Substance: PAROXETINE
     Indication: Anxiety disorder

REACTIONS (3)
  - Muscle spasms [Recovered/Resolved]
  - Nausea [Recovered/Resolved]
  - Therapeutic response decreased [Unknown]

NARRATIVE: CASE EVENT DATE: 20250301
